FAERS Safety Report 8620229-6 (Version None)
Quarter: 2012Q3

REPORT INFORMATION
  Report Type: 
  Country: None (occurrence: None)
  Receive Date: 20120816
  Receipt Date: 20120816
  Transmission Date: 20120928
  Serious: Yes (Hospitalization)
  Sender: FDA-Public Use
  Company Number: None

PATIENT
  Sex: Male
  Weight: 103 kg

DRUGS (4)
  1. TAXOL [Suspect]
     Dosage: 372 MG
  2. CARBOPLATIN [Suspect]
     Dosage: 750 MG
  3. AVASTIN [Suspect]
     Dosage: 1200 MG
  4. PEMETREXED [Suspect]
     Dosage: 726 MG

REACTIONS (1)
  - ACUTE MYELOID LEUKAEMIA [None]
